FAERS Safety Report 14085523 (Version 1)
Quarter: 2017Q4

REPORT INFORMATION
  Report Type: Spontaneous
  Country: CH (occurrence: CH)
  Receive Date: 20171013
  Receipt Date: 20171013
  Transmission Date: 20180321
  Serious: Yes (Hospitalization)
  Sender: FDA-Public Use
  Company Number: CH-ALKEM LABORATORIES LIMITED-CH-ALKEM-2017-00632

PATIENT
  Age: 34 Year
  Sex: Female

DRUGS (1)
  1. QUETIAPINE FUMARATE. [Suspect]
     Active Substance: QUETIAPINE FUMARATE
     Indication: SCHIZOPHRENIA
     Dosage: 300 MG, UNK
     Route: 065

REACTIONS (11)
  - Myoclonus [Unknown]
  - Electrocardiogram QT interval [Unknown]
  - Seizure [Unknown]
  - White blood cell count increased [Unknown]
  - Overdose [Unknown]
  - Urinary retention [Unknown]
  - Blood lactic acid increased [Unknown]
  - Agitation [Unknown]
  - Tachycardia [Not Recovered/Not Resolved]
  - Coma [Unknown]
  - Blood glucose increased [Unknown]
